FAERS Safety Report 5590099-1 (Version None)
Quarter: 2008Q1

REPORT INFORMATION
  Report Type: 
  Country: None (occurrence: None)
  Receive Date: 20080114
  Receipt Date: 20070604
  Transmission Date: 20080703
  Serious: No
  Sender: FDA-Public Use
  Company Number: US-ABBOTT-07P-163-0372410-00

PATIENT
  Age: 6 Year

DRUGS (1)
  1. OMNICEF [Suspect]
     Indication: EAR INFECTION

REACTIONS (2)
  - ABDOMINAL PAIN UPPER [None]
  - PAIN IN EXTREMITY [None]
